FAERS Safety Report 5788178-9 (Version None)
Quarter: 2008Q2

REPORT INFORMATION
  Report Type: 
  Country: None (occurrence: None)
  Receive Date: 20080623
  Receipt Date: 20080609
  Transmission Date: 20081010
  Serious: Yes (Hospitalization)
  Sender: FDA-Public Use
  Company Number: 310003M08USA

PATIENT
  Age: 31 Year
  Sex: Female
  Weight: 48.0813 kg

DRUGS (2)
  1. GONAL-F [Suspect]
     Indication: INFERTILITY
     Dates: start: 20030101, end: 20030101
  2. PRENATAL VITAMINS (PRENATAL VITAMINS) [Concomitant]

REACTIONS (12)
  - ABORTION SPONTANEOUS [None]
  - CONSTIPATION [None]
  - DRUG EXPOSURE DURING PREGNANCY [None]
  - INTRA-ABDOMINAL HAEMORRHAGE [None]
  - OVARIAN CYST RUPTURED [None]
  - OVARIAN ENLARGEMENT [None]
  - OVARIAN HYPERSTIMULATION SYNDROME [None]
  - PREGNANCY [None]
  - PYREXIA [None]
  - UTERINE HAEMORRHAGE [None]
  - VAGINAL HAEMORRHAGE [None]
  - WHITE BLOOD CELL COUNT INCREASED [None]
